FAERS Safety Report 24425815 (Version 1)
Quarter: 2024Q4

REPORT INFORMATION
  Report Type: Spontaneous
  Country: US (occurrence: US)
  Receive Date: 20241011
  Receipt Date: 20241011
  Transmission Date: 20250114
  Serious: Yes (Hospitalization, Other)
  Sender: LUPIN
  Company Number: US-LUPIN PHARMACEUTICALS INC.-2024-09639

PATIENT
  Age: 76 Year
  Sex: Male
  Weight: 81 kg

DRUGS (7)
  1. ATOVAQUONE [Suspect]
     Active Substance: ATOVAQUONE
     Indication: Prophylaxis
     Dosage: 1500 MILLIGRAM, QD
     Route: 048
  2. SULFAMETHOXAZOLE\TRIMETHOPRIM [Suspect]
     Active Substance: SULFAMETHOXAZOLE\TRIMETHOPRIM
     Indication: Pneumocystis jirovecii pneumonia
     Dosage: 5 MILLIGRAM/KILOGRAM, BID
     Route: 048
  3. SULFAMETHOXAZOLE\TRIMETHOPRIM [Suspect]
     Active Substance: SULFAMETHOXAZOLE\TRIMETHOPRIM
     Dosage: 5 MILLIGRAM/KILOGRAM, BID (RE-INITIATION)
     Route: 048
  4. PREDNISONE [Concomitant]
     Active Substance: PREDNISONE
     Indication: Granulomatosis with polyangiitis
     Dosage: UNK
     Route: 065
  5. RITUXIMAB [Concomitant]
     Active Substance: RITUXIMAB
     Indication: Granulomatosis with polyangiitis
     Dosage: UNK
     Route: 065
  6. METHYLENE BLUE [Concomitant]
     Active Substance: METHYLENE BLUE
     Indication: Methaemoglobinaemia
     Dosage: 1.5 MILLIGRAM/KILOGRAM, SINGLE
     Route: 042
  7. VITAMIN C [Concomitant]
     Active Substance: ASCORBIC ACID
     Indication: Methaemoglobinaemia
     Dosage: 1500 GRAM, QID
     Route: 042

REACTIONS (3)
  - Nephropathy toxic [Recovering/Resolving]
  - Acute kidney injury [Recovering/Resolving]
  - Drug ineffective [Unknown]
